FAERS Safety Report 6361755-2 (Version None)
Quarter: 2009Q3

REPORT INFORMATION
  Report Type: 
  Country: None (occurrence: None)
  Receive Date: 20090918
  Receipt Date: 20090917
  Transmission Date: 20100115
  Serious: Yes (Hospitalization)
  Sender: FDA-Public Use
  Company Number: AU-BRISTOL-MYERS SQUIBB COMPANY-14782890

PATIENT
  Age: 24 Year
  Sex: Male
  Weight: 58 kg

DRUGS (2)
  1. STAVUDINE CAPS [Suspect]
     Indication: HIV INFECTION
     Dosage: FREQUENCY= 2 TIMES
     Route: 048
     Dates: start: 20080925, end: 20080929
  2. TRUVADA [Suspect]

REACTIONS (6)
  - HEADACHE [None]
  - LETHARGY [None]
  - MYALGIA [None]
  - OROPHARYNGEAL PAIN [None]
  - PYREXIA [None]
  - RASH MACULO-PAPULAR [None]
